FAERS Safety Report 16908740 (Version 5)
Quarter: 2021Q1

REPORT INFORMATION
  Report Type: Spontaneous
  Country: US (occurrence: US)
  Receive Date: 20191011
  Receipt Date: 20210126
  Transmission Date: 20210419
  Serious: Yes (Hospitalization, Other)
  Sender: FDA-Public Use
  Company Number: US-ABBVIE-19K-163-2955611-00

PATIENT
  Sex: Male
  Weight: 72.64 kg

DRUGS (2)
  1. VENCLEXTA [Suspect]
     Active Substance: VENETOCLAX
     Indication: B-CELL LYMPHOMA
     Dosage: FOUR TABLETS WITH FOOD AND WATER WEEK THIRD.
     Route: 048
     Dates: start: 201904, end: 201904
  2. VENCLEXTA [Suspect]
     Active Substance: VENETOCLAX
     Indication: B-CELL SMALL LYMPHOCYTIC LYMPHOMA
     Dosage: TAKE THREE TABLETS WITH A MEAL AND WATER.
     Route: 048
     Dates: start: 201904

REACTIONS (5)
  - Hyperhidrosis [Recovered/Resolved]
  - Progressive multifocal leukoencephalopathy [Unknown]
  - Rash [Recovered/Resolved]
  - Off label use [Unknown]
  - Cough [Unknown]

NARRATIVE: CASE EVENT DATE: 2019
